FAERS Safety Report 7085680-7 (Version None)
Quarter: 2010Q4

REPORT INFORMATION
  Report Type: 
  Country: None (occurrence: None)
  Receive Date: 20101105
  Receipt Date: 20101101
  Transmission Date: 20110411
  Serious: Yes (Death, Other)
  Sender: FDA-Public Use
  Company Number: JP-PFIZER INC-2010116178

PATIENT
  Age: 56 Year
  Sex: Female

DRUGS (11)
  1. SILDENAFIL CITRATE [Suspect]
     Indication: PULMONARY ARTERIAL HYPERTENSION
     Dosage: 20 MG, 3X/DAY
     Route: 048
     Dates: start: 20080619
  2. ALDACTONE [Suspect]
  3. URSO 250 [Concomitant]
     Dosage: 100 MG, 3X/DAY
     Route: 048
     Dates: end: 20100130
  4. BASEN [Concomitant]
     Dosage: 0.3 MG, 3X/DAY
     Route: 048
     Dates: end: 20100130
  5. METFORMIN HCL [Concomitant]
     Dosage: 250 MG, 3X/DAY
     Route: 048
     Dates: end: 20100130
  6. WARFARIN [Concomitant]
     Dosage: 3 MG, 1X/DAY
     Route: 048
     Dates: end: 20100130
  7. BERAPROST SODIUM [Concomitant]
     Indication: PULMONARY HYPERTENSION
     Dosage: 180 MG, 2X/DAY
     Route: 048
     Dates: end: 20100130
  8. ZYLORIC ^FAES^ [Concomitant]
     Dosage: 100 MG, 1X/DAY
     Route: 048
     Dates: end: 20100130
  9. TRACLEER [Concomitant]
     Indication: PULMONARY HYPERTENSION
     Dosage: 125 MG, 2X/DAY
     Route: 048
     Dates: end: 20100130
  10. LASIX [Concomitant]
     Dosage: 100 MG, 1X/DAY
     Route: 048
     Dates: end: 20100130
  11. FERROUS CITRATE [Concomitant]
     Dosage: 50 MG, 2X/DAY
     Route: 048
     Dates: start: 20091211, end: 20100130

REACTIONS (2)
  - PNEUMOTHORAX [None]
  - RENAL IMPAIRMENT [None]
